FAERS Safety Report 14143366 (Version 3)
Quarter: 2019Q4

REPORT INFORMATION
  Report Type: Spontaneous
  Country: US (occurrence: US)
  Receive Date: 20171030
  Receipt Date: 20191108
  Transmission Date: 20200122
  Serious: Yes (Other)
  Sender: FDA-Public Use
  Company Number: US-SUNOVION-2017SUN004669

PATIENT
  Age: 22 Year
  Sex: Male

DRUGS (5)
  1. LATUDA [Suspect]
     Active Substance: LURASIDONE HYDROCHLORIDE
     Indication: SCHIZOPHRENIA
     Dosage: UNK
     Route: 048
     Dates: start: 2013, end: 2013
  2. LATUDA [Suspect]
     Active Substance: LURASIDONE HYDROCHLORIDE
     Indication: REACTIVE PSYCHOSIS
     Dosage: 80 MG, QD (2X40 MG TABLETS)
     Route: 048
     Dates: start: 201710, end: 201710
  3. TRAZODONE [Concomitant]
     Active Substance: TRAZODONE HYDROCHLORIDE
     Dosage: 50 MG
     Route: 065
  4. CLOZARIL [Concomitant]
     Active Substance: CLOZAPINE
     Dosage: 400 MG
     Route: 065
  5. BENZTROPINE. [Concomitant]
     Active Substance: BENZTROPINE
     Dosage: 1 MG, BID
     Route: 065

REACTIONS (6)
  - Psychotic symptom [Unknown]
  - Abnormal behaviour [Unknown]
  - Mental disorder [Unknown]
  - Speech disorder [Unknown]
  - Soliloquy [Unknown]
  - Aggression [Unknown]

NARRATIVE: CASE EVENT DATE: 201710
